FAERS Safety Report 15015020 (Version 1)
Quarter: 2018Q2

REPORT INFORMATION
  Report Type: Spontaneous
  Country: US (occurrence: US)
  Receive Date: 20180615
  Receipt Date: 20180615
  Transmission Date: 20180711
  Serious: Yes (Death, Other)
  Sender: FDA-Public Use
  Company Number: US-ALKEM LABORATORIES LIMITED-US-ALKEM-2018-04199

PATIENT
  Age: 61 Year
  Sex: Male

DRUGS (6)
  1. DIAZEPAM. [Concomitant]
     Active Substance: DIAZEPAM
     Indication: ASTHMA
     Dosage: 10 MG, UNK
     Route: 048
  2. ZUDOPENTHIXO [Concomitant]
     Indication: ASTHMA
     Dosage: 100 MG, UNK
     Route: 030
  3. RISPERIDONE. [Concomitant]
     Active Substance: RISPERIDONE
     Indication: ASTHMA
     Dosage: 1 MG, UNK
     Route: 048
  4. HALOPERIDOL. [Concomitant]
     Active Substance: HALOPERIDOL
     Indication: ASTHMA
     Dosage: 100 MG, UNK
     Route: 030
  5. OLANZAPINE. [Suspect]
     Active Substance: OLANZAPINE
     Indication: PRODUCT USED FOR UNKNOWN INDICATION
     Dosage: 20 MG, UNK
     Route: 030
  6. MIDAZOLAM [Concomitant]
     Active Substance: MIDAZOLAM HYDROCHLORIDE
     Indication: ASTHMA
     Dosage: 7.5 MG, UNK
     Route: 065

REACTIONS (1)
  - Sudden cardiac death [Fatal]
